FAERS Safety Report 12081634 (Version 1)
Quarter: 2016Q1

REPORT INFORMATION
  Report Type: Spontaneous
  Country: US (occurrence: US)
  Receive Date: 20160216
  Receipt Date: 20160216
  Transmission Date: 20160526
  Serious: No
  Sender: FDA-Public Use
  Company Number: US-BAYER-2016-028140

PATIENT
  Age: 31 Year
  Sex: Male
  Weight: 77.98 kg

DRUGS (3)
  1. CLARITIN-D 24 HOUR [Suspect]
     Active Substance: LORATADINE\PSEUDOEPHEDRINE SULFATE
     Indication: SEASONAL ALLERGY
     Dosage: 1 DF, QD
     Route: 048
     Dates: start: 20160202
  2. MULTIVITAMIN [Concomitant]
     Active Substance: VITAMINS
     Dosage: UNK
  3. IRON SUPPLEMENT [Concomitant]
     Active Substance: IRON
     Dosage: UNK

REACTIONS (4)
  - Paranoia [Not Recovered/Not Resolved]
  - Panic reaction [Not Recovered/Not Resolved]
  - Nervousness [Not Recovered/Not Resolved]
  - Intentional product misuse [None]

NARRATIVE: CASE EVENT DATE: 20160207
